FAERS Safety Report 9313259 (Version 1)
Quarter: 2013Q2

REPORT INFORMATION
  Report Type: Spontaneous
  Country: US (occurrence: US)
  Receive Date: 20130528
  Receipt Date: 20130528
  Transmission Date: 20140414
  Serious: No
  Sender: FDA-Public Use
  Company Number: US-ABBOTT-13P-163-1062390-00

PATIENT
  Sex: Male

DRUGS (2)
  1. ANDROGEL [Suspect]
     Indication: ANDROGEN DEFICIENCY
     Dosage: 2 PUMPS PER DAY
  2. ANDROGEL [Suspect]
     Dosage: OTHER ANDROGEL PRODUCT

REACTIONS (1)
  - Erectile dysfunction [Unknown]
